FAERS Safety Report 7512883-7 (Version None)
Quarter: 2011Q2

REPORT INFORMATION
  Report Type: 
  Country: None (occurrence: None)
  Receive Date: 20110531
  Receipt Date: 20101115
  Transmission Date: 20111010
  Serious: No
  Sender: FDA-Public Use
  Company Number: US-NOVEN-ALL1-2010-06004

PATIENT
  Sex: Female
  Weight: 17.687 kg

DRUGS (1)
  1. DAYTRANA [Suspect]
     Dosage: UNK MG, 1X/DAY:QD(10MG PATCH CUT TO 5MG)
     Route: 062
     Dates: start: 20100601

REACTIONS (5)
  - PRODUCT QUALITY ISSUE [None]
  - DRUG PRESCRIBING ERROR [None]
  - OFF LABEL USE [None]
  - ACCIDENTAL EXPOSURE [None]
  - DRUG EFFECT DECREASED [None]
